FAERS Safety Report 12833386 (Version 3)
Quarter: 2018Q1

REPORT INFORMATION
  Report Type: Report from Study
  Country: CA (occurrence: CA)
  Receive Date: 20161010
  Receipt Date: 20180202
  Transmission Date: 20180508
  Serious: Yes (Hospitalization)
  Sender: FDA-Public Use
  Company Number: CA-JNJFOC-20160919428

PATIENT
  Age: 77 Year
  Sex: Male
  Weight: 89 kg

DRUGS (2)
  1. REMICADE [Suspect]
     Active Substance: INFLIXIMAB
     Indication: CROHN^S DISEASE
     Route: 042
     Dates: start: 20150120, end: 20180129
  2. REMICADE [Suspect]
     Active Substance: INFLIXIMAB
     Indication: CROHN^S DISEASE
     Route: 042
     Dates: start: 20140120

REACTIONS (6)
  - Stoma obstruction [Recovered/Resolved]
  - Small intestinal obstruction [Recovering/Resolving]
  - Bladder cancer [Unknown]
  - Intestinal stenosis [Not Recovered/Not Resolved]
  - Nasopharyngitis [Not Recovered/Not Resolved]
  - Internal hernia [Unknown]

NARRATIVE: CASE EVENT DATE: 201609
